FAERS Safety Report 25650005 (Version 2)
Quarter: 2025Q3

REPORT INFORMATION
  Report Type: Spontaneous
  Country: US (occurrence: US)
  Receive Date: 20250806
  Receipt Date: 20250813
  Transmission Date: 20251021
  Serious: Yes (Other)
  Sender: TEVA
  Company Number: US-TEVA-VS-3358279

PATIENT
  Age: 68 Year
  Sex: Male

DRUGS (5)
  1. NALOXONE [Suspect]
     Active Substance: NALOXONE
     Indication: Back pain
     Route: 065
  2. BUPRENORPHINE [Suspect]
     Active Substance: BUPRENORPHINE
     Indication: Back pain
     Route: 065
  3. TRAZODONE [Concomitant]
     Active Substance: TRAZODONE HYDROCHLORIDE
     Indication: Product used for unknown indication
  4. GABAPENTIN [Concomitant]
     Active Substance: GABAPENTIN
     Indication: Product used for unknown indication
  5. DEVICE [Suspect]
     Active Substance: DEVICE

REACTIONS (1)
  - Hypercapnia [Recovering/Resolving]
